FAERS Safety Report 8140626-5 (Version None)
Quarter: 2012Q1

REPORT INFORMATION
  Report Type: 
  Country: None (occurrence: None)
  Receive Date: 20120216
  Receipt Date: 20120206
  Transmission Date: 20120608
  Serious: Yes (Other)
  Sender: FDA-Public Use
  Company Number: CA-JNJFOC-20120205051

PATIENT
  Sex: Male

DRUGS (3)
  1. IBUPROFEN (ADVIL) [Concomitant]
     Route: 065
  2. REMICADE [Suspect]
     Indication: FOETAL EXPOSURE DURING PREGNANCY
     Dosage: TRANSPLACENTAL ROUTE
     Route: 063
  3. REMICADE [Suspect]
     Indication: EXPOSURE DURING BREAST FEEDING
     Dosage: TRANSPLACENTAL ROUTE
     Route: 063

REACTIONS (3)
  - BREAST FEEDING [None]
  - HAEMATOCHEZIA [None]
  - LACTOSE INTOLERANCE [None]
